FAERS Safety Report 20751564 (Version 2)
Quarter: 2022Q2

REPORT INFORMATION
  Report Type: Spontaneous
  Country: US (occurrence: US)
  Receive Date: 20220426
  Receipt Date: 20220506
  Transmission Date: 20220721
  Serious: No
  Sender: FDA-Public Use
  Company Number: US-TEVA-2022-US-2026255

PATIENT
  Age: 72 Year
  Sex: Male
  Weight: 70.31 kg

DRUGS (3)
  1. ADIPEX-P [Suspect]
     Active Substance: PHENTERMINE HYDROCHLORIDE
     Indication: Weight control
  2. ADIPEX-P [Suspect]
     Active Substance: PHENTERMINE HYDROCHLORIDE
  3. CEPHALEXIN [Concomitant]
     Active Substance: CEPHALEXIN
     Indication: Cellulitis

REACTIONS (14)
  - Kyphosis [Unknown]
  - Osteoporosis [Unknown]
  - Pruritus [Recovering/Resolving]
  - Skin exfoliation [Recovering/Resolving]
  - Dysuria [Not Recovered/Not Resolved]
  - Appetite disorder [Unknown]
  - Tremor [Unknown]
  - Lymphoedema [Unknown]
  - Feeling abnormal [Unknown]
  - Scab [Recovering/Resolving]
  - Product use issue [Unknown]
  - Adverse drug reaction [Unknown]
  - COVID-19 [Unknown]
  - Skin ulcer [Recovered/Resolved]
